FAERS Safety Report 6016882-6 (Version None)
Quarter: 2008Q4

REPORT INFORMATION
  Report Type: 
  Country: None (occurrence: None)
  Receive Date: 20081219
  Receipt Date: 20080926
  Transmission Date: 20090506
  Serious: Yes (Disabling)
  Sender: FDA-Public Use
  Company Number: 2008S1000458

PATIENT
  Age: 43 Year
  Sex: Female
  Weight: 43.6 kg

DRUGS (5)
  1. CUBICIN [Suspect]
     Indication: CATHETER BACTERAEMIA
     Dosage: 8 MG/KG; QD; IV
     Route: 042
  2. PIPERACILLIN [Concomitant]
  3. TAZOBACTAM [Concomitant]
  4. GENTAMICIN [Concomitant]
  5. MEROPENEM [Concomitant]

REACTIONS (2)
  - CONVULSION [None]
  - DELIRIUM [None]
